FAERS Safety Report 11096537 (Version 1)
Quarter: 2015Q2

REPORT INFORMATION
  Report Type: Spontaneous
  Country: US (occurrence: None)
  Receive Date: 20150505
  Receipt Date: 20150505
  Transmission Date: 20150821
  Serious: Yes (Hospitalization)
  Sender: FDA-Public Use
  Company Number: 2015BV000042

PATIENT
  Age: 9 Month
  Sex: Female

DRUGS (2)
  1. BENZODIAZEPINE DERIVATIVES [Concomitant]
     Active Substance: BENZODIAZEPINE
  2. FOSPHENYTOIN SODIUM. [Suspect]
     Active Substance: FOSPHENYTOIN SODIUM
     Indication: SEIZURE
     Route: 042

REACTIONS (5)
  - Acute respiratory failure [None]
  - Cardiogenic shock [None]
  - Accidental overdose [None]
  - Off label use [None]
  - Cardiomyopathy [None]
